FAERS Safety Report 6578001-7 (Version None)
Quarter: 2010Q1

REPORT INFORMATION
  Report Type: 
  Country: None (occurrence: None)
  Receive Date: 20100211
  Receipt Date: 20091027
  Transmission Date: 20100710
  Serious: Yes (Hospitalization)
  Sender: FDA-Public Use
  Company Number: US-BRISTOL-MYERS SQUIBB COMPANY-14806236

PATIENT
  Age: 65 Year
  Sex: Female

DRUGS (4)
  1. IXEMPRA KIT [Suspect]
     Indication: BREAST CANCER METASTATIC
     Dosage: 86MG,8HO15B(EXP DATE:8/10),8IO16A(EXP DATE:9/10)
     Route: 042
     Dates: start: 20090813
  2. COREG [Suspect]
  3. DEMADEX [Suspect]
  4. NORVASC [Suspect]

REACTIONS (5)
  - DIZZINESS POSTURAL [None]
  - HYPOTENSION [None]
  - PAIN [None]
  - PARAESTHESIA [None]
  - PRURITUS [None]
